FAERS Safety Report 16301951 (Version 2)
Quarter: 2021Q2

REPORT INFORMATION
  Report Type: Spontaneous
  Country: US (occurrence: US)
  Receive Date: 20190512
  Receipt Date: 20210409
  Transmission Date: 20210716
  Serious: Yes (Other)
  Sender: FDA-Public Use
  Company Number: PHEH2019US020389

PATIENT
  Sex: Female

DRUGS (1)
  1. TASIGNA [Suspect]
     Active Substance: NILOTINIB
     Indication: CHRONIC MYELOID LEUKAEMIA
     Dosage: 1 DF, BID
     Route: 048
     Dates: start: 20150713, end: 2018

REACTIONS (18)
  - Injury [Unknown]
  - Tremor [Unknown]
  - Cellulitis [Unknown]
  - Necrosis [Unknown]
  - Dyslipidaemia [Unknown]
  - Emotional distress [Unknown]
  - Peripheral vascular disorder [Unknown]
  - Pain [Unknown]
  - Nephrolithiasis [Unknown]
  - Coronary artery occlusion [Unknown]
  - Obesity [Unknown]
  - Arteriosclerosis [Unknown]
  - Anxiety [Unknown]
  - Atrial fibrillation [Unknown]
  - Osteoarthritis [Unknown]
  - Back pain [Unknown]
  - Peripheral arterial occlusive disease [Unknown]
  - Skin ulcer [Unknown]
